FAERS Safety Report 14316187 (Version 1)
Quarter: 2017Q4

REPORT INFORMATION
  Report Type: Spontaneous
  Country: CA (occurrence: CA)
  Receive Date: 20171222
  Receipt Date: 20171222
  Transmission Date: 20180321
  Serious: Yes (Hospitalization, Other)
  Sender: FDA-Public Use
  Company Number: CA-APOTEX-2017AP022655

PATIENT
  Age: 51 Year
  Sex: Male

DRUGS (2)
  1. DIPHENHYDRAMINE. [Suspect]
     Active Substance: DIPHENHYDRAMINE
     Indication: PRODUCT USED FOR UNKNOWN INDICATION
     Dosage: 200 MG, UNK
     Route: 048
  2. APO-VERAP SR [Suspect]
     Active Substance: VERAPAMIL HYDROCHLORIDE
     Indication: PRODUCT USED FOR UNKNOWN INDICATION
     Dosage: 19.2 G, UNK
     Route: 048

REACTIONS (16)
  - Lactic acidosis [Unknown]
  - Compartment syndrome [Unknown]
  - Ileus [Unknown]
  - General physical health deterioration [None]
  - Vasoplegia syndrome [Unknown]
  - Bradycardia [Unknown]
  - Hyperkalaemia [Recovering/Resolving]
  - Coma scale abnormal [Unknown]
  - Extracorporeal membrane oxygenation [None]
  - Continuous haemodiafiltration [None]
  - Overdose [Unknown]
  - Rhabdomyolysis [Unknown]
  - Cardiogenic shock [Recovered/Resolved]
  - Pulse absent [Recovered/Resolved]
  - Cardiac arrest [Recovered/Resolved]
  - Systolic dysfunction [None]
